FAERS Safety Report 23059794 (Version 2)
Quarter: 2023Q4

REPORT INFORMATION
  Report Type: Spontaneous
  Country: US (occurrence: US)
  Receive Date: 20231012
  Receipt Date: 20231019
  Transmission Date: 20240110
  Serious: Yes (Life-Threatening, Other)
  Sender: FDA-Public Use
  Company Number: US-PFIZER INC-202300318621

PATIENT
  Age: 22 Year
  Sex: Male

DRUGS (3)
  1. KETAMINE HYDROCHLORIDE [Suspect]
     Active Substance: KETAMINE HYDROCHLORIDE
     Indication: Agitation
     Dosage: (LAST DOSE) 3 SEPARATE DOSES TOTALING 100 MG OVER A 2 HOUR PERIOD
     Route: 042
  2. KETAMINE HYDROCHLORIDE [Suspect]
     Active Substance: KETAMINE HYDROCHLORIDE
     Dosage: (SECOND DOSE) 3 SEPARATE DOSES TOTALING 100 MG OVER A 2 HOUR PERIOD
     Route: 042
  3. KETAMINE HYDROCHLORIDE [Suspect]
     Active Substance: KETAMINE HYDROCHLORIDE
     Dosage: (FIRST DOSE) 3 SEPARATE DOSES TOTALING 100 MG OVER A 2 HOUR PERIOD
     Route: 042

REACTIONS (3)
  - Laryngospasm [Recovered/Resolved]
  - Negative pressure pulmonary oedema [Recovered/Resolved]
  - Off label use [Unknown]
